FAERS Safety Report 8333318 (Version 5)
Quarter: 2012Q4

REPORT INFORMATION
  Report Type: 
  Country: US (occurrence: US)
  Receive Date: 20120112
  Receipt Date: 20120828
  Transmission Date: 20130627
  Serious: Yes (Other)
  Sender: FDA-Public Use
  Company Number: US-PFIZER INC-2012000927

PATIENT
  Age: 90 Year
  Sex: Female
  Weight: 54.42 kg

DRUGS (3)
  1. XALATAN [Suspect]
     Indication: GLAUCOMA
     Dosage: 1 Gtt, 1x/day to left eye
     Route: 047
     Dates: start: 2010, end: 201208
  2. ALPHAGAN P [Concomitant]
     Dosage: 1 Gtt, 2x/day left eye
  3. COSOPT [Concomitant]
     Dosage: 1 Gtt, 2x/day left eye

REACTIONS (4)
  - Intraocular pressure test abnormal [Unknown]
  - Oropharyngeal pain [Unknown]
  - Dry eye [Unknown]
  - Pharyngeal disorder [Unknown]
